FAERS Safety Report 16754304 (Version 1)
Quarter: 2019Q3

REPORT INFORMATION
  Report Type: Spontaneous
  Country: DE (occurrence: DE)
  Receive Date: 20190829
  Receipt Date: 20190829
  Transmission Date: 20191005
  Serious: Yes (Hospitalization)
  Sender: FDA-Public Use
  Company Number: DE-PFIZER INC-2019368882

PATIENT
  Age: 28 Year
  Sex: Male

DRUGS (3)
  1. LYRICA [Suspect]
     Active Substance: PREGABALIN
     Indication: ANXIETY DISORDER
     Dosage: 75 MG, UNK
  2. LYRICA [Suspect]
     Active Substance: PREGABALIN
     Indication: NEURALGIA
     Dosage: 150 MG, UNK
     Dates: start: 201908
  3. QUERCETIN [Suspect]
     Active Substance: QUERCETIN
     Dosage: UNK
     Dates: start: 201908

REACTIONS (5)
  - Dizziness [Unknown]
  - Dysstasia [Unknown]
  - Therapeutic product effect incomplete [Unknown]
  - Thinking abnormal [Unknown]
  - Disorientation [Unknown]
